FAERS Safety Report 9059966 (Version 1)
Quarter: 2013Q1

REPORT INFORMATION
  Report Type: Spontaneous
  Country: CA (occurrence: CA)
  Receive Date: 20130212
  Receipt Date: 20130212
  Transmission Date: 20140127
  Serious: Yes (Other)
  Sender: FDA-Public Use
  Company Number: CA-AMGEN-CANSP2013005492

PATIENT
  Age: 44 Year
  Sex: Female

DRUGS (1)
  1. ENBREL [Suspect]
     Indication: ANKYLOSING SPONDYLITIS
     Dosage: 50 UNK, UNK
     Route: 058
     Dates: start: 20121017

REACTIONS (3)
  - Iritis [Recovered/Resolved]
  - Condition aggravated [Unknown]
  - Nasopharyngitis [Recovering/Resolving]
